FAERS Safety Report 10150967 (Version 4)
Quarter: 2015Q2

REPORT INFORMATION
  Report Type: Spontaneous
  Country: PR (occurrence: US)
  Receive Date: 20140502
  Receipt Date: 20150610
  Transmission Date: 20150821
  Serious: Yes (Hospitalization, Other)
  Sender: FDA-Public Use
  Company Number: PR-BAYER-2014-064383

PATIENT
  Age: 32 Year
  Sex: Female
  Weight: 81.63 kg

DRUGS (2)
  1. YAZ [Suspect]
     Active Substance: DROSPIRENONE\ETHINYL ESTRADIOL
     Dosage: UNK
     Dates: start: 20030130, end: 20030529
  2. YASMIN [Suspect]
     Active Substance: DROSPIRENONE\ETHINYL ESTRADIOL
     Dosage: UNK
     Dates: start: 20030130, end: 20030529

REACTIONS (27)
  - Gastrointestinal disorder [None]
  - Heart rate irregular [Not Recovered/Not Resolved]
  - Palpitations [Not Recovered/Not Resolved]
  - Quality of life decreased [None]
  - Hypertension [Not Recovered/Not Resolved]
  - Pulmonary embolism [None]
  - Psychological trauma [None]
  - Intestinal obstruction [None]
  - Cardiovascular disorder [None]
  - Ventricular tachycardia [Not Recovered/Not Resolved]
  - Chest pain [None]
  - Genital haemorrhage [None]
  - Colitis [None]
  - Cardiac disorder [Not Recovered/Not Resolved]
  - Bradycardia [Not Recovered/Not Resolved]
  - Coagulopathy [None]
  - Portal vein thrombosis [None]
  - Gallbladder disorder [None]
  - Deep vein thrombosis [Not Recovered/Not Resolved]
  - Supraventricular tachycardia [Not Recovered/Not Resolved]
  - Migraine [None]
  - Tachycardia [Not Recovered/Not Resolved]
  - Hepatic function abnormal [None]
  - Injury [Not Recovered/Not Resolved]
  - Thrombophlebitis [Not Recovered/Not Resolved]
  - Atrial fibrillation [Not Recovered/Not Resolved]
  - Arrhythmia [Not Recovered/Not Resolved]

NARRATIVE: CASE EVENT DATE: 2003
